FAERS Safety Report 17445168 (Version 1)
Quarter: 2020Q1

REPORT INFORMATION
  Report Type: Spontaneous
  Country: US (occurrence: US)
  Receive Date: 20200221
  Receipt Date: 20200221
  Transmission Date: 20200409
  Serious: No
  Sender: FDA-Public Use
  Company Number: US-PFIZER INC-2020077231

PATIENT
  Age: 63 Year
  Sex: Female

DRUGS (2)
  1. BOSULIF [Suspect]
     Active Substance: BOSUTINIB MONOHYDRATE
     Dosage: 300 MG, UNK
  2. BOSULIF [Suspect]
     Active Substance: BOSUTINIB MONOHYDRATE
     Indication: CHRONIC MYELOID LEUKAEMIA
     Dosage: 500 MG, DAILY
     Route: 048
     Dates: start: 201910, end: 201911

REACTIONS (10)
  - Back pain [Unknown]
  - Nausea [Unknown]
  - Arthralgia [Unknown]
  - Muscle disorder [Unknown]
  - Gait inability [Unknown]
  - Neck pain [Unknown]
  - Musculoskeletal discomfort [Unknown]
  - Retching [Unknown]
  - Nerve compression [Unknown]
  - Pain in extremity [Unknown]
